FAERS Safety Report 14100288 (Version 1)
Quarter: 2017Q4

REPORT INFORMATION
  Report Type: Spontaneous
  Country: NZ (occurrence: NZ)
  Receive Date: 20171017
  Receipt Date: 20171017
  Transmission Date: 20180321
  Serious: Yes (Other)
  Sender: FDA-Public Use
  Company Number: NZ-MYLANLABS-2017M1064039

PATIENT
  Sex: Female
  Weight: 38 kg

DRUGS (1)
  1. FENTANYL. [Suspect]
     Active Substance: FENTANYL
     Indication: PRODUCT USED FOR UNKNOWN INDICATION
     Dosage: 100 ?G, UNK
     Dates: start: 2012

REACTIONS (2)
  - Circulatory collapse [Unknown]
  - Accidental overdose [Unknown]

NARRATIVE: CASE EVENT DATE: 2012
